FAERS Safety Report 6982822-6 (Version None)
Quarter: 2010Q3

REPORT INFORMATION
  Report Type: 
  Country: None (occurrence: None)
  Receive Date: 20100914
  Receipt Date: 20100414
  Transmission Date: 20110219
  Serious: No
  Sender: FDA-Public Use
  Company Number: US-PFIZER INC-2010047389

PATIENT
  Sex: Female
  Weight: 69 kg

DRUGS (6)
  1. LYRICA [Suspect]
     Indication: DIABETIC NEUROPATHY
     Dosage: UNK MG, 3X/DAY
     Route: 048
     Dates: start: 20100101
  2. XANAX [Concomitant]
     Indication: ANXIETY
     Dosage: 2.5 MG, 2X/DAY
     Route: 048
  3. AMLODIPINE [Concomitant]
     Indication: BLOOD PRESSURE
     Dosage: 10 MG, 1X/DAY
     Route: 048
  4. LIPITOR [Concomitant]
     Dosage: UNK
     Route: 048
  5. METOPROLOL [Concomitant]
     Indication: CARDIAC DISORDER
     Dosage: UNK
  6. VICODIN [Concomitant]
     Indication: PAIN
     Dosage: UNK MG, 4X/DAY
     Route: 048

REACTIONS (1)
  - OEDEMA PERIPHERAL [None]
